FAERS Safety Report 17114629 (Version 3)
Quarter: 2019Q4

REPORT INFORMATION
  Report Type: Spontaneous
  Country: BE (occurrence: BE)
  Receive Date: 20191205
  Receipt Date: 20191220
  Transmission Date: 20200122
  Serious: Yes (Life-Threatening, Hospitalization)
  Sender: FDA-Public Use
  Company Number: BE-MYLANLABS-2019M1119440

PATIENT
  Age: 20 Year
  Sex: Male
  Weight: 105 kg

DRUGS (15)
  1. TARADYL [Suspect]
     Active Substance: KETOROLAC TROMETHAMINE
     Indication: ANALGESIC THERAPY
     Dosage: 30 MILLIGRAM, TOTAL
     Route: 042
     Dates: start: 20190311, end: 20190311
  2. PROPOLIPID [Concomitant]
     Active Substance: PROPOFOL
     Indication: SURGERY
  3. CATAPRESSAN                        /00171101/ [Concomitant]
     Active Substance: CLONIDINE
     Dosage: 300 MICROGRAM, TOTAL
     Route: 042
     Dates: start: 20190311, end: 20190311
  4. CEFAZOLIN [Suspect]
     Active Substance: CEFAZOLIN
     Indication: ANTIBIOTIC PROPHYLAXIS
     Dosage: 2 GRAM, TOTAL
     Route: 042
     Dates: start: 20190311, end: 20190311
  5. CEFAZOLIN [Suspect]
     Active Substance: CEFAZOLIN
     Indication: SURGERY
  6. PROPOLIPID [Concomitant]
     Active Substance: PROPOFOL
     Indication: INDUCTION OF ANAESTHESIA
     Dosage: 200 MILLIGRAM, TOTAL
     Route: 042
     Dates: start: 20190311, end: 20190311
  7. PARACETAMOL [Suspect]
     Active Substance: ACETAMINOPHEN
     Indication: ANALGESIC THERAPY
     Dosage: 2 GRAM, QD
     Route: 048
     Dates: start: 20190311, end: 20190314
  8. IBUPROFEN. [Suspect]
     Active Substance: IBUPROFEN
     Indication: ANALGESIC THERAPY
     Dosage: 3 DOSAGE FORM, QD (DOSE INCONNUE 3 COMPRIM?S 3X/J PDT 3-4 JOURS POST OP)
     Route: 048
     Dates: start: 20190311, end: 20190314
  9. LITICAN                            /00690801/ [Concomitant]
     Active Substance: ALIZAPRIDE
     Indication: NAUSEA
     Dosage: 50 MILLIGRAM, TOTAL
     Route: 042
     Dates: start: 20190311, end: 20190311
  10. DEXAMETHASONE. [Concomitant]
     Active Substance: DEXAMETHASONE
     Indication: GASTROINTESTINAL DISORDER PROPHYLAXIS
     Dosage: 4 MILLIGRAM, TOTAL
     Route: 042
     Dates: start: 20190311, end: 20190311
  11. SEVOFLURANE. [Suspect]
     Active Substance: SEVOFLURANE
     Indication: GENERAL ANAESTHESIA
     Dosage: A RE?U 40ML LE 11 MARS DURANT LA MAMMECTOMIE PR?C?DEMMENT LE PATIENT AVAIT D?J? ?T? EXPOS?
     Route: 055
     Dates: start: 20190311, end: 20190311
  12. PARACETAMOL [Suspect]
     Active Substance: ACETAMINOPHEN
     Indication: PERIOPERATIVE ANALGESIA
     Dosage: 1 GRAM, TOTAL
     Route: 042
     Dates: start: 20190311, end: 20190311
  13. KETAMINE [Concomitant]
     Active Substance: KETAMINE
     Indication: SURGERY
     Dosage: 100 MILLIGRAM, TOTAL
     Route: 042
     Dates: start: 20190311, end: 20190311
  14. TRACRIUM [Concomitant]
     Active Substance: ATRACURIUM BESYLATE
     Indication: SURGERY
     Dosage: 50 MILLIGRAM, TOTAL
     Route: 042
     Dates: start: 20190311, end: 20190311
  15. LISINOPRIL. [Concomitant]
     Active Substance: LISINOPRIL
     Indication: SURGERY
     Dosage: 100 MILLIGRAM, TOTAL (LISINOPRIL 2%)
     Route: 042
     Dates: start: 20190311, end: 20190311

REACTIONS (8)
  - Asthenia [Recovering/Resolving]
  - Hepatic encephalopathy [Recovering/Resolving]
  - Pruritus [Recovering/Resolving]
  - Hepatitis fulminant [Recovering/Resolving]
  - Coagulopathy [Recovering/Resolving]
  - Acne [Recovering/Resolving]
  - Jaundice [Recovering/Resolving]
  - Drug hypersensitivity [Recovering/Resolving]

NARRATIVE: CASE EVENT DATE: 20190313
